FAERS Safety Report 9397123 (Version 1)
Quarter: 2013Q3

REPORT INFORMATION
  Report Type: Spontaneous
  Country: US (occurrence: US)
  Receive Date: 20130712
  Receipt Date: 20130712
  Transmission Date: 20140515
  Serious: No
  Sender: FDA-Public Use
  Company Number: US-PFIZER INC-2013204284

PATIENT
  Sex: Female

DRUGS (2)
  1. VENLAFAXINE HCL [Suspect]
     Dosage: UNK
  2. PRISTIQ [Concomitant]
     Dosage: UNK

REACTIONS (3)
  - Anxiety [Unknown]
  - Crying [Unknown]
  - Drug ineffective [Unknown]
